FAERS Safety Report 9446038 (Version 1)
Quarter: 2013Q3

REPORT INFORMATION
  Report Type: Spontaneous
  Country: FR (occurrence: FR)
  Receive Date: 20130807
  Receipt Date: 20130807
  Transmission Date: 20140515
  Serious: Yes (Hospitalization)
  Sender: FDA-Public Use
  Company Number: FR-ASTRAZENECA-2013SE59073

PATIENT
  Age: 848 Month
  Sex: Female

DRUGS (4)
  1. INEXIUM [Suspect]
     Indication: ULCER
     Route: 048
     Dates: start: 20130709, end: 20130712
  2. INEXIUM [Suspect]
     Indication: ULCER
     Route: 048
     Dates: start: 20130715, end: 20130716
  3. SOLUMEDROL [Concomitant]
     Indication: LARYNGEAL OEDEMA
     Dates: start: 20130710
  4. EUPANTOL [Concomitant]
     Indication: ULCER
     Dates: start: 20130714, end: 20130715

REACTIONS (2)
  - Neurological decompensation [Recovered/Resolved]
  - Depressed level of consciousness [Recovered/Resolved]
